FAERS Safety Report 7321478-X (Version None)
Quarter: 2011Q1

REPORT INFORMATION
  Report Type: 
  Country: None (occurrence: None)
  Receive Date: 20110228
  Receipt Date: 20100524
  Transmission Date: 20110831
  Serious: Yes (Other)
  Sender: FDA-Public Use
  Company Number: US-PFIZER INC-2010065069

PATIENT
  Sex: Male
  Weight: 47 kg

DRUGS (3)
  1. MONTELUKAST SODIUM [Concomitant]
     Indication: HYPERSENSITIVITY
     Dosage: 1 MG/DAILY
     Route: 048
  2. MONTELUKAST SODIUM [Concomitant]
     Indication: ASTHMA
  3. GEODON [Suspect]
     Indication: ATTENTION DEFICIT/HYPERACTIVITY DISORDER
     Dosage: 40 MG, 1X/DAY
     Route: 048
     Dates: start: 20100501, end: 20100501

REACTIONS (2)
  - ELECTROCARDIOGRAM QT PROLONGED [None]
  - DIZZINESS [None]
